FAERS Safety Report 13894219 (Version 1)
Quarter: 2017Q3

REPORT INFORMATION
  Report Type: Spontaneous
  Country: US (occurrence: US)
  Receive Date: 20170816
  Receipt Date: 20170816
  Transmission Date: 20171127
  Serious: Yes (Disabling)
  Sender: FDA-Public Use
  Company Number: None

PATIENT
  Age: 61 Year
  Sex: Female
  Weight: 63 kg

DRUGS (6)
  1. PENTASIA [Concomitant]
  2. TRAMADOL. [Concomitant]
     Active Substance: TRAMADOL
  3. PROBIOTIC [Concomitant]
     Active Substance: PROBIOTICS NOS
  4. NYSTATIN. [Concomitant]
     Active Substance: NYSTATIN
  5. CEPHALEXIN. [Suspect]
     Active Substance: CEPHALEXIN
     Indication: BLADDER OPERATION
     Dosage: ?          QUANTITY:1 CAPSULE(S);?
     Route: 048
     Dates: start: 20170809, end: 20170812
  6. CALCIUM [Concomitant]
     Active Substance: CALCIUM

REACTIONS (4)
  - Oral discomfort [None]
  - Tongue disorder [None]
  - Candida infection [None]
  - Oral pain [None]

NARRATIVE: CASE EVENT DATE: 20170810
